FAERS Safety Report 12729998 (Version 1)
Quarter: 2016Q3

REPORT INFORMATION
  Report Type: Spontaneous
  Country: BR (occurrence: BR)
  Receive Date: 20160909
  Receipt Date: 20160909
  Transmission Date: 20161109
  Serious: Yes (Death, Other)
  Sender: FDA-Public Use
  Company Number: BR-JNJFOC-20160907041

PATIENT
  Age: 28 Year
  Sex: Male

DRUGS (1)
  1. XARELTO [Suspect]
     Active Substance: RIVAROXABAN
     Indication: PRODUCT USED FOR UNKNOWN INDICATION
     Route: 048

REACTIONS (5)
  - Congestive cardiomyopathy [Unknown]
  - Drug ineffective [Unknown]
  - Cerebrovascular accident [Fatal]
  - Cerebrovascular accident [Unknown]
  - Atrial thrombosis [Unknown]

NARRATIVE: CASE EVENT DATE: 201408
